FAERS Safety Report 8869757 (Version 1)
Quarter: 2012Q4

REPORT INFORMATION
  Report Type: 
  Country: US (occurrence: US)
  Receive Date: 20121026
  Receipt Date: 20121026
  Transmission Date: 20130627
  Serious: No
  Sender: FDA-Public Use
  Company Number: US-AMGEN-USASP2012045843

PATIENT
  Age: 63 Year
  Sex: Female

DRUGS (10)
  1. ENBREL [Suspect]
     Indication: PRODUCT USED FOR UNKNOWN INDICATION
     Dosage: 50 mg/ml, qwk
     Route: 058
  2. DYAZIDE [Concomitant]
     Dosage: UNK 37.5-25
  3. PLAQUENIL                          /00072602/ [Concomitant]
     Dosage: 200 mg, UNK
  4. PREDNISONE [Concomitant]
     Dosage: 1 mg, UNK
  5. ARAVA [Concomitant]
     Dosage: 20 mg, UNK
  6. PRILOSEC                           /00661201/ [Concomitant]
     Dosage: 40 mg, UNK
  7. MULTIVITAMIN                       /00097801/ [Concomitant]
     Dosage: UNK
  8. FOLIC ACID [Concomitant]
  9. CALCIUM MAGNESIUM [Concomitant]
  10. VITAMIN D /00107901/ [Concomitant]

REACTIONS (1)
  - Fatigue [Unknown]
